FAERS Safety Report 9825195 (Version 1)
Quarter: 2013Q4

REPORT INFORMATION
  Report Type: Spontaneous
  Country: US (occurrence: None)
  Receive Date: 20131028
  Receipt Date: 20131028
  Transmission Date: 20140711
  Serious: Yes (Other)
  Sender: FDA-Public Use
  Company Number: 2013US001776

PATIENT
  Age: 26 Year
  Sex: Male
  Weight: 86 kg

DRUGS (4)
  1. ICLUSIG [Suspect]
     Indication: ACUTE LYMPHOCYTIC LEUKAEMIA
     Route: 048
  2. VALTREX (VALACICLOVIR HYDROCHLORIDE) [Concomitant]
  3. MAGNESIUM (MAGNESIUM) [Concomitant]
  4. VORICONAZOLE (VORICONAZOLE) [Concomitant]

REACTIONS (2)
  - Dry skin [None]
  - Arthralgia [None]
